FAERS Safety Report 17970173 (Version 2)
Quarter: 2020Q3

REPORT INFORMATION
  Report Type: Report from Study
  Country: None (occurrence: US)
  Receive Date: 20200701
  Receipt Date: 20200721
  Transmission Date: 20201103
  Serious: Yes (Other)
  Sender: FDA-Public Use
  Company Number: US-ABBVIE-20K-163-3461920-00

PATIENT
  Sex: Female

DRUGS (4)
  1. VENCLEXTA [Suspect]
     Active Substance: VENETOCLAX
     Indication: NON-HODGKIN^S LYMPHOMA
     Route: 048
  2. VENCLEXTA [Suspect]
     Active Substance: VENETOCLAX
     Indication: HERPES ZOSTER
     Route: 048
  3. VENCLEXTA [Suspect]
     Active Substance: VENETOCLAX
     Indication: CONJUNCTIVITIS ALLERGIC
     Route: 048
  4. VENCLEXTA [Suspect]
     Active Substance: VENETOCLAX
     Indication: ABNORMAL LOSS OF WEIGHT

REACTIONS (7)
  - Off label use [Unknown]
  - Neoplasm malignant [Unknown]
  - Weight decreased [Unknown]
  - Herpes zoster [Unknown]
  - Cough [Unknown]
  - Conjunctivitis [Unknown]
  - Blindness unilateral [Unknown]
